FAERS Safety Report 20926807 (Version 3)
Quarter: 2022Q2

REPORT INFORMATION
  Report Type: Spontaneous
  Country: JP (occurrence: JP)
  Receive Date: 20220607
  Receipt Date: 20220617
  Transmission Date: 20220720
  Serious: Yes (Hospitalization, Disabling, Other)
  Sender: FDA-Public Use
  Company Number: JP-BRISTOL-MYERS SQUIBB COMPANY-BMS-2021-071388

PATIENT
  Age: 52 Year
  Sex: Male

DRUGS (11)
  1. YERVOY [Suspect]
     Active Substance: IPILIMUMAB
     Indication: Non-small cell lung cancer
     Dosage: 1 MG/KG
     Route: 041
     Dates: start: 202103, end: 20210719
  2. YERVOY [Suspect]
     Active Substance: IPILIMUMAB
  3. OPDIVO [Suspect]
     Active Substance: NIVOLUMAB
     Indication: Non-small cell lung cancer
     Dosage: 360 MILLIGRAM
     Route: 041
     Dates: start: 202103, end: 20210719
  4. OPDIVO [Suspect]
     Active Substance: NIVOLUMAB
  5. PEMETREXED [Suspect]
     Active Substance: PEMETREXED
     Indication: Non-small cell lung cancer recurrent
     Route: 065
     Dates: start: 202103
  6. CISPLATIN [Suspect]
     Active Substance: CISPLATIN
     Indication: Non-small cell lung cancer
     Route: 065
     Dates: start: 202103
  7. EDOXABAN TOSYLATE [Concomitant]
     Active Substance: EDOXABAN TOSYLATE
     Indication: Product used for unknown indication
     Route: 065
  8. EDOXABAN TOSYLATE [Concomitant]
     Active Substance: EDOXABAN TOSYLATE
     Route: 065
  9. MIYA-BM [Concomitant]
     Active Substance: CLOSTRIDIUM BUTYRICUM SPORES STRAIN M-55
     Indication: Product used for unknown indication
     Route: 065
  10. MIYA-BM [Concomitant]
     Active Substance: CLOSTRIDIUM BUTYRICUM SPORES STRAIN M-55
     Route: 065
  11. PANVITAN BABY [Concomitant]
     Indication: Product used for unknown indication
     Route: 065

REACTIONS (5)
  - Pulmonary artery thrombosis [Unknown]
  - Adrenal insufficiency [Recovered/Resolved]
  - Immune-mediated hyperthyroidism [Recovered/Resolved]
  - Immune-mediated lung disease [Recovered/Resolved]
  - Immune-mediated dermatitis [Recovering/Resolving]

NARRATIVE: CASE EVENT DATE: 20210414
